FAERS Safety Report 5602427-9 (Version None)
Quarter: 2008Q1

REPORT INFORMATION
  Report Type: 
  Country: None (occurrence: None)
  Receive Date: 20080122
  Receipt Date: 20080115
  Transmission Date: 20080703
  Serious: Yes (Hospitalization)
  Sender: FDA-Public Use
  Company Number: 163-21880-07111178

PATIENT
  Age: 68 Year
  Sex: Male

DRUGS (11)
  1. REVLIMID [Suspect]
     Indication: MULTIPLE MYELOMA
     Dosage: 25 MG, QD X 21 DAYS, ORAL; X2 WEEKS ON THEN 1 WEEK OFF, ORAL
     Route: 048
     Dates: start: 20070901, end: 20071101
  2. REVLIMID [Suspect]
     Indication: MULTIPLE MYELOMA
     Dosage: 25 MG, QD X 21 DAYS, ORAL; X2 WEEKS ON THEN 1 WEEK OFF, ORAL
     Route: 048
     Dates: start: 20071101
  3. DEXAMETHASONE TAB [Concomitant]
  4. MULTIVITAMIN [Concomitant]
  5. HYDROCODONE BITARTRATE [Concomitant]
  6. WARFARIN SODIUM [Concomitant]
  7. PROTONIX [Concomitant]
  8. POTASSIUM (POTASSIUM) [Concomitant]
  9. FLORINEF (FLUDROCORTISONE ACTATE) [Concomitant]
  10. PREDNISONE TAB [Concomitant]
  11. FUROSEMIDE [Concomitant]

REACTIONS (6)
  - ANAEMIA [None]
  - ASTHENIA [None]
  - CARDIAC FAILURE CONGESTIVE [None]
  - CARDIAC FAILURE HIGH OUTPUT [None]
  - GENERALISED OEDEMA [None]
  - PULMONARY EMBOLISM [None]
